FAERS Safety Report 7991889-8 (Version None)
Quarter: 2011Q4

REPORT INFORMATION
  Report Type: 
  Country: None (occurrence: None)
  Receive Date: 20111219
  Receipt Date: 20111212
  Transmission Date: 20120403
  Serious: Yes (Other)
  Sender: FDA-Public Use
  Company Number: US-ABBOTT-11P-163-0882791-00

PATIENT
  Sex: Female
  Weight: 62.652 kg

DRUGS (5)
  1. HUMIRA [Suspect]
     Indication: RHEUMATOID ARTHRITIS
     Dates: start: 20090601, end: 20091201
  2. MOBIC [Concomitant]
     Indication: RHEUMATOID ARTHRITIS
     Dosage: PRN
  3. HUMIRA [Suspect]
     Dates: start: 20100501, end: 20100501
  4. HUMIRA [Suspect]
     Dates: start: 20101201, end: 20101201
  5. HUMIRA [Suspect]
     Dates: start: 20111101, end: 20111101

REACTIONS (7)
  - MUSCULOSKELETAL STIFFNESS [None]
  - STRESS URINARY INCONTINENCE [None]
  - RHEUMATOID ARTHRITIS [None]
  - MUSCLE STRAIN [None]
  - MOVEMENT DISORDER [None]
  - JOINT SWELLING [None]
  - JOINT STIFFNESS [None]
